FAERS Safety Report 16142330 (Version 3)
Quarter: 2019Q2

REPORT INFORMATION
  Report Type: Spontaneous
  Country: US (occurrence: US)
  Receive Date: 20190401
  Receipt Date: 20190527
  Transmission Date: 20190711
  Serious: No
  Sender: FDA-Public Use
  Company Number: US-SA-2019SA088027

PATIENT
  Age: 65 Year
  Sex: Female
  Weight: 158 kg

DRUGS (1)
  1. LANTUS SOLOSTAR [Suspect]
     Active Substance: INSULIN GLARGINE
     Indication: TYPE 2 DIABETES MELLITUS
     Dosage: 5 U, HS
     Route: 065
     Dates: start: 20190115

REACTIONS (5)
  - Nasopharyngitis [Unknown]
  - Product dose omission [Unknown]
  - Device issue [Unknown]
  - Blood glucose increased [Unknown]
  - Product storage error [Unknown]
